FAERS Safety Report 6931032-7 (Version None)
Quarter: 2010Q3

REPORT INFORMATION
  Report Type: 
  Country: None (occurrence: None)
  Receive Date: 20100818
  Receipt Date: 20100806
  Transmission Date: 20110219
  Serious: Yes (Other)
  Sender: FDA-Public Use
  Company Number: DE-WATSON-2010-10999

PATIENT
  Age: 30 Year
  Sex: Male
  Weight: 71.5 kg

DRUGS (3)
  1. RISPERIDONE [Suspect]
     Indication: MENTAL IMPAIRMENT
     Dosage: 2 MG, DAILY
     Route: 048
     Dates: start: 20100625, end: 20100625
  2. LORAZEPAM [Concomitant]
     Indication: ANXIETY
     Dosage: 1 MG, DAILY
     Route: 048
     Dates: start: 20100608, end: 20100626
  3. PROMETHAZINE [Concomitant]
     Indication: ANXIETY
     Dosage: 1 MG, DAILY
     Route: 048
     Dates: start: 20100608, end: 20100626

REACTIONS (7)
  - APATHY [None]
  - APHAGIA [None]
  - MUSCULOSKELETAL STIFFNESS [None]
  - OEDEMA PERIPHERAL [None]
  - PARKINSONIAN GAIT [None]
  - PYREXIA [None]
  - RESTLESSNESS [None]
